FAERS Safety Report 15459785 (Version 5)
Quarter: 2020Q1

REPORT INFORMATION
  Report Type: Spontaneous
  Country: DE (occurrence: DE)
  Receive Date: 20181003
  Receipt Date: 20200211
  Transmission Date: 20200409
  Serious: Yes (Other)
  Sender: FDA-Public Use
  Company Number: DE-GUERBET-DE-20180106

PATIENT
  Age: 67 Year
  Sex: Male
  Weight: 102 kg

DRUGS (5)
  1. DOTAREM [Suspect]
     Active Substance: GADOTERATE MEGLUMINE
     Indication: MAGNETIC RESONANCE IMAGING
     Route: 065
  2. XENETIX [Suspect]
     Active Substance: IOBITRIDOL
     Indication: COMPUTERISED TOMOGRAM ABDOMEN
     Route: 065
     Dates: start: 201304, end: 201304
  3. IOMERON [Suspect]
     Active Substance: IOMEPROL
     Indication: ANGIOCARDIOGRAM
     Route: 065
     Dates: start: 20140325
  4. TECHNETIUM TC 99M [Suspect]
     Active Substance: TECHNETIUM TC-99M
     Indication: DIAGNOSTIC PROCEDURE
     Route: 065
     Dates: start: 20130423
  5. XENETIX 300 [Suspect]
     Active Substance: IOBITRIDOL
     Indication: COMPUTERISED TOMOGRAM
     Route: 065
     Dates: start: 2014, end: 2014

REACTIONS (21)
  - Eye irritation [Recovering/Resolving]
  - Fatigue [Recovering/Resolving]
  - Head discomfort [Recovering/Resolving]
  - Feeling of body temperature change [Recovering/Resolving]
  - Muscle twitching [Recovering/Resolving]
  - Dry eye [Recovering/Resolving]
  - Pulpitis dental [Recovering/Resolving]
  - Hyperhidrosis [Recovering/Resolving]
  - Skin discomfort [Recovering/Resolving]
  - Muscular weakness [Recovering/Resolving]
  - Faeces hard [Recovering/Resolving]
  - Speech disorder [Recovering/Resolving]
  - Motor dysfunction [Recovering/Resolving]
  - Abdominal distension [Recovering/Resolving]
  - Condition aggravated [Recovering/Resolving]
  - Balance disorder [Recovering/Resolving]
  - Nerve conduction studies abnormal [Recovering/Resolving]
  - Gait disturbance [Recovering/Resolving]
  - Sleep disorder [Recovering/Resolving]
  - Contrast media toxicity [Recovering/Resolving]
  - Dry mouth [Recovering/Resolving]

NARRATIVE: CASE EVENT DATE: 201403
